FAERS Safety Report 5755987-1 (Version None)
Quarter: 2008Q2

REPORT INFORMATION
  Report Type: 
  Country: None (occurrence: None)
  Receive Date: 20080528
  Receipt Date: 20080516
  Transmission Date: 20081010
  Serious: Yes (Hospitalization)
  Sender: FDA-Public Use
  Company Number: CERZ-1000223

PATIENT
  Age: 17 Month
  Sex: Male
  Weight: 9.4 kg

DRUGS (9)
  1. CEREZYME [Suspect]
     Indication: GAUCHER'S DISEASE
     Dosage: 600 U, Q2W, INTRAVENOUS
     Route: 042
  2. METHYLPREDNISOLONE [Concomitant]
  3. EPOETIN ALFA (EPOETIN ALFA) [Concomitant]
  4. VITAMIN K (VITAMIN K NOS) [Concomitant]
  5. PENICILLIN VK [Concomitant]
  6. CHLOROTHIAZIDE [Concomitant]
  7. ERGOCALCIFEROL (ERGOCALCIFEROL) [Concomitant]
  8. OMEPRAZOLE [Concomitant]
  9. MIRALAX [Concomitant]

REACTIONS (1)
  - SPLEEN DISORDER [None]
